FAERS Safety Report 6050302-0 (Version None)
Quarter: 2009Q1

REPORT INFORMATION
  Report Type: 
  Country: None (occurrence: None)
  Receive Date: 20090126
  Receipt Date: 20090115
  Transmission Date: 20090719
  Serious: Yes (Hospitalization)
  Sender: FDA-Public Use
  Company Number: GB-ROCHE-608773

PATIENT
  Sex: Female

DRUGS (12)
  1. CAPECITABINE [Suspect]
     Indication: COLORECTAL CANCER
     Dosage: 2000 MG/M2 DAILY IN TWO DIVIDED DOSES D1-14 OF 21-DAY CYCLE (PER PROTOCOL)
     Route: 048
     Dates: start: 20071123, end: 20071223
  2. CAPECITABINE [Suspect]
     Dosage: DOSE WAS REDUCED BY 25%
     Route: 048
     Dates: start: 20080118
  3. CAPECITABINE [Suspect]
     Route: 048
     Dates: end: 20080916
  4. BEVACIZUMAB [Suspect]
     Indication: COLORECTAL CANCER
     Dosage: 7.5 MG/KG IV D1 OF 21 DAY CYCLE (PER PROTOCOL)
     Route: 042
     Dates: start: 20071123, end: 20071223
  5. BEVACIZUMAB [Suspect]
     Dosage: 7.5 MG/KG IV D1 OF 21 DAY CYCLE (PER PROTOCOL)
     Route: 042
     Dates: start: 20080118
  6. BEVACIZUMAB [Suspect]
     Dosage: 7.5 MG/KG IV D1 OF 21 DAY CYCLE (PER PROTOCOL)
     Route: 042
     Dates: end: 20080916
  7. OXALIPLATIN [Suspect]
     Indication: COLORECTAL CANCER
     Dosage: 130 MG/M2 IV D1 OF 21-DAY CYCLE (PER PROTOCOL)
     Route: 042
     Dates: start: 20071123, end: 20071223
  8. OXALIPLATIN [Suspect]
     Route: 042
     Dates: start: 20080118
  9. OXALIPLATIN [Suspect]
     Route: 042
     Dates: end: 20080916
  10. ACETAMINOPHEN W/ CODEINE [Concomitant]
  11. LANSOPRAZOLE [Concomitant]
  12. METOCLOPRAMIDE [Concomitant]

REACTIONS (2)
  - DIARRHOEA [None]
  - DUODENAL PERFORATION [None]
